FAERS Safety Report 24323580 (Version 1)
Quarter: 2024Q3

REPORT INFORMATION
  Report Type: Spontaneous
  Country: CA (occurrence: CA)
  Receive Date: 20240916
  Receipt Date: 20240916
  Transmission Date: 20241016
  Serious: Yes (Life-Threatening)
  Sender: PFIZER
  Company Number: CA-PFIZER INC-202400255444

PATIENT
  Sex: Male

DRUGS (1)
  1. VYNDAQEL [Suspect]
     Active Substance: TAFAMIDIS MEGLUMINE
     Indication: Cardiac amyloidosis
     Dosage: 1 FOIS PAR JOUR/ONCE EVERY DAY
     Dates: start: 202001

REACTIONS (2)
  - Ejection fraction decreased [Recovered/Resolved with Sequelae]
  - N-terminal prohormone brain natriuretic peptide increased [Recovered/Resolved with Sequelae]
